FAERS Safety Report 7249194-3 (Version None)
Quarter: 2011Q1

REPORT INFORMATION
  Report Type: 
  Country: None (occurrence: None)
  Receive Date: 20110128
  Receipt Date: 20101202
  Transmission Date: 20110831
  Serious: Yes (Hospitalization)
  Sender: FDA-Public Use
  Company Number: SG-BAYER-2010-000017

PATIENT
  Age: 54 Year
  Sex: Male
  Weight: 52 kg

DRUGS (6)
  1. PROPRANOLOL HYDROCHLORIDE [Concomitant]
     Indication: HYPERTENSION
     Dosage: 10 MG, OM
     Route: 048
     Dates: start: 20100809
  2. LOPERAMIDE HCL [Concomitant]
     Indication: DIARRHOEA
     Dosage: 4 MG, TID
     Route: 048
     Dates: start: 20101024
  3. ANTINEOPLASTIC AGENTS [Suspect]
     Indication: HEPATIC NEOPLASM MALIGNANT
     Dosage: 75 MG, OM
     Route: 048
     Dates: start: 20100430, end: 20101127
  4. ADEFOVIR DIPIVOXIL KIT [Concomitant]
     Indication: HEPATITIS B
     Dosage: 10 MG, OM
     Route: 048
     Dates: start: 20100901
  5. SORAFENIB (RAF KINASE INHIBITOR) [Suspect]
     Indication: HEPATIC NEOPLASM MALIGNANT
     Dosage: 400 MG, OM
     Route: 048
     Dates: start: 20100430, end: 20101127
  6. LAMIVUDINE [Concomitant]
     Indication: HEPATITIS B
     Dosage: 100 MG, OM
     Route: 048
     Dates: start: 20060101

REACTIONS (6)
  - PYREXIA [None]
  - DECREASED APPETITE [None]
  - GASTROENTERITIS [None]
  - DIARRHOEA [None]
  - ABDOMINAL DISCOMFORT [None]
  - LETHARGY [None]
